FAERS Safety Report 5819072-2 (Version None)
Quarter: 2008Q3

REPORT INFORMATION
  Report Type: 
  Country: None (occurrence: None)
  Receive Date: 20080721
  Receipt Date: 20080721
  Transmission Date: 20090109
  Serious: Yes (Life-Threatening, Hospitalization)
  Sender: FDA-Public Use
  Company Number: None

PATIENT
  Age: 71 Year
  Sex: Female
  Weight: 83.0083 kg

DRUGS (1)
  1. ENBREL [Suspect]
     Indication: RHEUMATOID ARTHRITIS
     Dosage: 2 INJ. OF 1.0 ML WEEKLY SQ
     Route: 058
     Dates: start: 19980410, end: 20080220

REACTIONS (8)
  - CELLULITIS [None]
  - CONFUSIONAL STATE [None]
  - DEHYDRATION [None]
  - DIARRHOEA [None]
  - INCOHERENT [None]
  - MALAISE [None]
  - PYREXIA [None]
  - VOMITING [None]
